FAERS Safety Report 24443462 (Version 1)
Quarter: 2024Q4

REPORT INFORMATION
  Report Type: Spontaneous
  Country: US (occurrence: US)
  Receive Date: 20241016
  Receipt Date: 20241016
  Transmission Date: 20250115
  Serious: Yes (Hospitalization)
  Sender: CHIESI
  Company Number: US-CHIESI-2024CHF06660

PATIENT
  Sex: Male

DRUGS (13)
  1. BETHKIS [Suspect]
     Active Substance: TOBRAMYCIN
     Indication: Cystic fibrosis lung
     Dosage: 300 MILLIGRAM, BID
  2. BETHKIS [Suspect]
     Active Substance: TOBRAMYCIN
     Indication: Cystic fibrosis
  3. CAYSTON [Suspect]
     Active Substance: AZTREONAM
     Indication: Cystic fibrosis lung
     Dosage: UNK
  4. CAYSTON [Suspect]
     Active Substance: AZTREONAM
     Indication: Cystic fibrosis
  5. ZENPEP [Concomitant]
     Active Substance: PANCRELIPASE AMYLASE\PANCRELIPASE LIPASE\PANCRELIPASE PROTEASE
     Indication: Product used for unknown indication
     Dosage: UNK
  6. SODIUM CHLORIDE [Concomitant]
     Active Substance: SODIUM CHLORIDE
     Indication: Product used for unknown indication
     Dosage: UNK
  7. PROVENTIL [Concomitant]
     Active Substance: ALBUTEROL
     Indication: Product used for unknown indication
     Dosage: UNK
  8. MOMETASONE FUROATE [Concomitant]
     Active Substance: MOMETASONE FUROATE
     Indication: Product used for unknown indication
     Dosage: UNK
  9. OMEPRAZOLE [Concomitant]
     Active Substance: OMEPRAZOLE
     Indication: Product used for unknown indication
     Dosage: UNK
  10. POLYETHYLENE GLYCOL 3350 [Concomitant]
     Active Substance: POLYETHYLENE GLYCOL 3350
     Indication: Product used for unknown indication
     Dosage: UNK
  11. IBUPROFEN [Concomitant]
     Active Substance: IBUPROFEN
     Indication: Product used for unknown indication
     Dosage: UNK
  12. VITAMIN D3 [Concomitant]
     Active Substance: CHOLECALCIFEROL
     Indication: Product used for unknown indication
     Dosage: UNK
  13. PULMOZYME [Concomitant]
     Active Substance: DORNASE ALFA
     Indication: Product used for unknown indication
     Dosage: UNK

REACTIONS (2)
  - Ill-defined disorder [Unknown]
  - Off label use [Unknown]
